FAERS Safety Report 5088105-6 (Version None)
Quarter: 2006Q3

REPORT INFORMATION
  Report Type: 
  Country: None (occurrence: None)
  Receive Date: 20060823
  Receipt Date: 20060823
  Transmission Date: 20061208
  Serious: Yes (Hospitalization)
  Sender: FDA-Public Use
  Company Number: None

PATIENT
  Age: 60 Year
  Sex: Male
  Weight: 93.441 kg

DRUGS (1)
  1. IBUPROFEN [Suspect]
     Indication: PAIN
     Dosage: 800 MG PO TID
     Route: 048

REACTIONS (4)
  - ALCOHOL USE [None]
  - FAECES DISCOLOURED [None]
  - MELAENA [None]
  - TREATMENT NONCOMPLIANCE [None]
